FAERS Safety Report 4901483-0 (Version None)
Quarter: 2006Q1

REPORT INFORMATION
  Report Type: 
  Country: None (occurrence: None)
  Receive Date: 20060201
  Receipt Date: 20060201
  Transmission Date: 20060701
  Serious: Yes (Hospitalization)
  Sender: FDA-Public Use
  Company Number: None

PATIENT
  Age: 56 Year
  Sex: Male

DRUGS (4)
  1. ASPIRIN [Suspect]
     Indication: POSTOPERATIVE CARE
     Dosage: 81 MG DAILY PO
     Route: 048
     Dates: start: 20050825, end: 20050909
  2. ASPIRIN [Suspect]
     Indication: STENT PLACEMENT
     Dosage: 81 MG DAILY PO
     Route: 048
     Dates: start: 20050825, end: 20050909
  3. CLOPIDOGREL 75 MG SANOFI-SYNTHELABO [Suspect]
     Indication: POSTOPERATIVE CARE
     Dosage: 75 MG DAILY PO
     Route: 048
     Dates: start: 20050901, end: 20050909
  4. CLOPIDOGREL 75 MG SANOFI-SYNTHELABO [Suspect]
     Indication: STENT PLACEMENT
     Dosage: 75 MG DAILY PO
     Route: 048
     Dates: start: 20050901, end: 20050909

REACTIONS (4)
  - ANAEMIA [None]
  - CHEST PAIN [None]
  - GASTRIC ULCER [None]
  - GASTRITIS [None]
